FAERS Safety Report 17551417 (Version 3)
Quarter: 2020Q2

REPORT INFORMATION
  Report Type: Report from Study
  Country: US (occurrence: US)
  Receive Date: 20200317
  Receipt Date: 20200605
  Transmission Date: 20200713
  Serious: Yes (Other)
  Sender: FDA-Public Use
  Company Number: NVSC2020US068414

PATIENT
  Age: 57 Year
  Sex: Male

DRUGS (1)
  1. ENTRESTO [Suspect]
     Active Substance: SACUBITRIL\VALSARTAN
     Indication: CARDIAC FAILURE CHRONIC
     Dosage: UNK
     Route: 065
     Dates: start: 20191029

REACTIONS (9)
  - Product dose omission [Recovered/Resolved]
  - Arthralgia [Unknown]
  - Rhinorrhoea [Unknown]
  - Throat clearing [Unknown]
  - Weight increased [Unknown]
  - Somnolence [Not Recovered/Not Resolved]
  - Decreased appetite [Unknown]
  - Dyspnoea [Unknown]
  - Myocardial infarction [Unknown]

NARRATIVE: CASE EVENT DATE: 201911
